FAERS Safety Report 18898209 (Version 1)
Quarter: 2021Q1

REPORT INFORMATION
  Report Type: Spontaneous
  Country: US (occurrence: US)
  Receive Date: 20210213
  Receipt Date: 20210213
  Transmission Date: 20210420
  Serious: No
  Sender: FDA-Public Use
  Company Number: None

PATIENT
  Age: 64 Year
  Sex: Female
  Weight: 90.9 kg

DRUGS (8)
  1. CIPROFLOXACIN 500MG TABLETS [Suspect]
     Active Substance: CIPROFLOXACIN
     Indication: BACTERIAL INFECTION
     Dosage: ?          QUANTITY:60 TABLET(S);?
     Route: 048
     Dates: start: 20210129, end: 20210131
  2. AMARYL [Concomitant]
     Active Substance: GLIMEPIRIDE
  3. VIT D [Concomitant]
     Active Substance: VITAMIN D NOS
  4. ADRENAL SUPPLEMENT [Concomitant]
  5. CIPROFLOXACIN 500MG TABLETS [Suspect]
     Active Substance: CIPROFLOXACIN
     Indication: SINUSITIS
     Dosage: ?          QUANTITY:60 TABLET(S);?
     Route: 048
     Dates: start: 20210129, end: 20210131
  6. DOXYCYCLINE. [Concomitant]
     Active Substance: DOXYCYCLINE
  7. LEVOTHYROXIN [Concomitant]
     Active Substance: LEVOTHYROXINE
  8. LIOTHYRONINE [Concomitant]
     Active Substance: LIOTHYRONINE

REACTIONS (6)
  - Muscle spasms [None]
  - Headache [None]
  - Arthralgia [None]
  - Insomnia [None]
  - Myalgia [None]
  - Dizziness [None]

NARRATIVE: CASE EVENT DATE: 20210131
